FAERS Safety Report 10037654 (Version 1)
Quarter: 2014Q1

REPORT INFORMATION
  Report Type: Spontaneous
  Country: US (occurrence: None)
  Receive Date: 20140324
  Receipt Date: 20140324
  Transmission Date: 20141002
  Serious: Yes (Hospitalization)
  Sender: FDA-Public Use
  Company Number: UTC-045963

PATIENT
  Age: 39 Year
  Sex: Female
  Weight: 45 kg

DRUGS (3)
  1. REMODULIN [Suspect]
     Indication: COR PULMONALE CHRONIC
     Dosage: 0.024 UG/KG 1 IN 1 MIN)
     Route: 058
  2. COUMADIN (WARFARIN SODIUM) [Concomitant]
  3. TRACLEER (BOSENTAN) [Concomitant]

REACTIONS (1)
  - Dyspnoea [None]
